FAERS Safety Report 10356611 (Version 1)
Quarter: 2014Q3

REPORT INFORMATION
  Report Type: Spontaneous
  Country: US (occurrence: None)
  Receive Date: 20140730
  Receipt Date: 20140730
  Transmission Date: 20150326
  Serious: No
  Sender: FDA-Public Use
  Company Number: None

PATIENT
  Age: 32 Year
  Sex: Male

DRUGS (2)
  1. SOVALDI [Suspect]
     Active Substance: SOFOSBUVIR
     Route: 048
  2. OLYSIO [Suspect]
     Active Substance: SIMEPREVIR
     Route: 048
     Dates: start: 20140709

REACTIONS (1)
  - Headache [None]

NARRATIVE: CASE EVENT DATE: 201407
